FAERS Safety Report 14230359 (Version 5)
Quarter: 2018Q2

REPORT INFORMATION
  Report Type: Spontaneous
  Country: US (occurrence: US)
  Receive Date: 20171128
  Receipt Date: 20180601
  Transmission Date: 20180711
  Serious: Yes (Hospitalization, Other)
  Sender: FDA-Public Use
  Company Number: US-SA-2017SA230106

PATIENT
  Age: 84 Year
  Sex: Female

DRUGS (3)
  1. LANTUS SOLOSTAR [Suspect]
     Active Substance: INSULIN GLARGINE
     Dosage: 55 DF,BID
     Route: 051
     Dates: start: 201707
  2. LANTUS SOLOSTAR [Suspect]
     Active Substance: INSULIN GLARGINE
     Dosage: 55 DF,BID
     Route: 051
     Dates: start: 201707
  3. LANTUS SOLOSTAR [Suspect]
     Active Substance: INSULIN GLARGINE
     Indication: TYPE 2 DIABETES MELLITUS
     Dosage: 55 DF,BID
     Route: 051
     Dates: start: 201707

REACTIONS (19)
  - Carpal tunnel decompression [Unknown]
  - Arthralgia [Unknown]
  - Hospitalisation [Unknown]
  - Visual impairment [Unknown]
  - Depressed mood [Unknown]
  - Balance disorder [Unknown]
  - Pain in extremity [Unknown]
  - Eye disorder [Unknown]
  - Device issue [Unknown]
  - Dysstasia [Unknown]
  - Injury associated with device [Unknown]
  - Intentional product misuse [Unknown]
  - Tunnel vision [Unknown]
  - Dyspnoea [Unknown]
  - Back pain [Unknown]
  - Product use issue [Unknown]
  - Emotional distress [Unknown]
  - Dizziness [Unknown]
  - Vasodilatation [Unknown]

NARRATIVE: CASE EVENT DATE: 201707
